FAERS Safety Report 18566188 (Version 1)
Quarter: 2020Q4

REPORT INFORMATION
  Report Type: Other
  Country: NL (occurrence: CY)
  Receive Date: 20201201
  Receipt Date: 20201201
  Transmission Date: 20210114
  Serious: Yes (Other)
  Sender: FDA-Public Use
  Company Number: NL-CHIESI-2020CHF05771

PATIENT
  Age: 38 Year
  Sex: Female
  Weight: 60 kg

DRUGS (1)
  1. FERRIPROX [Suspect]
     Active Substance: DEFERIPRONE
     Indication: THALASSAEMIA
     Dosage: 500 MILLIGRAM, UNK
     Route: 048
     Dates: start: 2003, end: 20200319

REACTIONS (1)
  - Leukopenia [Recovered/Resolved]
